FAERS Safety Report 11405983 (Version 2)
Quarter: 2015Q4

REPORT INFORMATION
  Report Type: Spontaneous
  Country: US (occurrence: US)
  Receive Date: 20150821
  Receipt Date: 20151030
  Transmission Date: 20160304
  Serious: Yes (Hospitalization, Other)
  Sender: FDA-Public Use
  Company Number: US-AMGEN-USASP2015084885

PATIENT
  Sex: Male

DRUGS (1)
  1. PROCRIT [Suspect]
     Active Substance: ERYTHROPOIETIN
     Indication: PRODUCT USED FOR UNKNOWN INDICATION
     Dosage: UNK UNK, EVERY WEEK
     Route: 058

REACTIONS (11)
  - Transfusion [Unknown]
  - Platelet count decreased [Unknown]
  - Blood glucose increased [Unknown]
  - Epistaxis [Unknown]
  - Malaise [Unknown]
  - Full blood count decreased [Unknown]
  - Dehydration [Unknown]
  - Blood electrolytes decreased [Unknown]
  - Rheumatoid arthritis [Unknown]
  - Renal failure [Unknown]
  - Blood sodium decreased [Unknown]
